FAERS Safety Report 4834673-6 (Version None)
Quarter: 2005Q4

REPORT INFORMATION
  Report Type: 
  Country: None (occurrence: None)
  Receive Date: 20051122
  Receipt Date: 20051110
  Transmission Date: 20060501
  Serious: Yes (Other)
  Sender: FDA-Public Use
  Company Number: ES-GLAXOSMITHKLINE-B0400278A

PATIENT
  Age: 28 Year
  Sex: Male

DRUGS (3)
  1. LAMICTAL [Suspect]
     Indication: BIPOLAR II DISORDER
     Dosage: 25MG PER DAY
     Route: 048
     Dates: start: 20050601, end: 20050601
  2. ORFIDAL [Concomitant]
  3. SSRI [Concomitant]

REACTIONS (4)
  - DRUG HYPERSENSITIVITY [None]
  - HYPERSENSITIVITY [None]
  - PRURITUS [None]
  - RASH [None]
